FAERS Safety Report 25487175 (Version 1)
Quarter: 2025Q2

REPORT INFORMATION
  Report Type: Spontaneous
  Country: CN (occurrence: CN)
  Receive Date: 20250627
  Receipt Date: 20250627
  Transmission Date: 20250717
  Serious: Yes (Other)
  Sender: Kenvue
  Company Number: CN-KENVUE-20250610469

PATIENT

DRUGS (2)
  1. TYLENOL FOR CHILDREN PLUS ADULTS [Suspect]
     Active Substance: ACETAMINOPHEN
     Indication: Upper respiratory tract infection
     Dosage: 2.5 MILLILITER, ONCE A DAY
     Route: 048
     Dates: start: 20250609, end: 20250609
  2. MOTRIN INFANTS [Suspect]
     Active Substance: IBUPROFEN
     Indication: Antipyresis
     Route: 048
     Dates: start: 20250609, end: 20250609

REACTIONS (3)
  - Hallucination, visual [Recovered/Resolved]
  - Agitation [Recovered/Resolved]
  - Incorrect dose administered [Unknown]

NARRATIVE: CASE EVENT DATE: 20250609
